FAERS Safety Report 10061967 (Version 1)
Quarter: 2014Q2

REPORT INFORMATION
  Report Type: Spontaneous
  Country: GB (occurrence: None)
  Receive Date: 20140403
  Receipt Date: 20140403
  Transmission Date: 20141212
  Serious: Yes (Other)
  Sender: FDA-Public Use
  Company Number: AUR-APL-2014-04011

PATIENT
  Age: 63 Year
  Sex: Male
  Weight: 114.3 kg

DRUGS (5)
  1. SIMVASTATIN [Suspect]
     Indication: HYPERCHOLESTEROLAEMIA
     Route: 048
     Dates: start: 19980101, end: 20140304
  2. AMLODIPINE [Concomitant]
  3. ASPIRIN (ACETYLSALICYLIC ACID) [Concomitant]
  4. BISOPROLOL [Concomitant]
  5. DOXAZOSIN MESYLATE (DOXAZOSIN MESILATE) [Concomitant]

REACTIONS (2)
  - Fatigue [None]
  - Arthropathy [None]
